FAERS Safety Report 4704239-7 (Version None)
Quarter: 2005Q2

REPORT INFORMATION
  Report Type: 
  Country: None (occurrence: None)
  Receive Date: 20050627
  Receipt Date: 20041202
  Transmission Date: 20051028
  Serious: Yes (Hospitalization)
  Sender: FDA-Public Use
  Company Number: US-JNJFOC-20040904158

PATIENT
  Age: 55 Year
  Sex: Female

DRUGS (3)
  1. DURAGESIC-100 [Suspect]
     Indication: PAIN
     Dosage: 100 UG/HR, 1 IN 72 HOUR, TRANSDERMAL
     Route: 062
     Dates: start: 20040701
  2. ELAVIL [Concomitant]
     Dosage: ORAL
     Route: 048
     Dates: start: 20040826
  3. KLONOPIN [Concomitant]

REACTIONS (3)
  - AMNESIA [None]
  - ANXIETY [None]
  - RESTLESSNESS [None]
